FAERS Safety Report 4683963-9 (Version None)
Quarter: 2005Q2

REPORT INFORMATION
  Report Type: 
  Country: None (occurrence: None)
  Receive Date: 20050607
  Receipt Date: 20050526
  Transmission Date: 20051028
  Serious: Yes (Disabling)
  Sender: FDA-Public Use
  Company Number: BR-MERCK-0506BRA00010

PATIENT
  Age: 60 Year
  Sex: Female

DRUGS (1)
  1. VIOXX [Suspect]
     Indication: PAIN
     Route: 048

REACTIONS (3)
  - CARDIAC DISORDER [None]
  - CARDIOMEGALY [None]
  - FATIGUE [None]
